FAERS Safety Report 6311954-0 (Version None)
Quarter: 2009Q3

REPORT INFORMATION
  Report Type: 
  Country: None (occurrence: None)
  Receive Date: 20090817
  Receipt Date: 20090518
  Transmission Date: 20100115
  Serious: Yes (Other)
  Sender: FDA-Public Use
  Company Number: US-BRISTOL-MYERS SQUIBB COMPANY-14255376

PATIENT
  Age: 62 Year
  Sex: Female

DRUGS (4)
  1. ESTRACE [Suspect]
     Dates: start: 19980101
  2. PREMARIN [Suspect]
     Dates: start: 19980101
  3. PROVERA [Suspect]
     Dates: start: 19980101
  4. FEMHRT [Suspect]

REACTIONS (1)
  - BREAST CANCER [None]
